FAERS Safety Report 10794365 (Version 1)
Quarter: 2015Q1

REPORT INFORMATION
  Report Type: Spontaneous
  Country: US (occurrence: US)
  Receive Date: 20150213
  Receipt Date: 20150213
  Transmission Date: 20150721
  Serious: Yes (Hospitalization, Other)
  Sender: FDA-Public Use
  Company Number: US-EMD SERONO-8008524

PATIENT
  Age: 50 Year
  Sex: Female

DRUGS (7)
  1. OLANZAPINE. [Suspect]
     Active Substance: OLANZAPINE
     Indication: PRODUCT USED FOR UNKNOWN INDICATION
  2. REBIF [Suspect]
     Active Substance: INTERFERON BETA-1A
     Indication: MULTIPLE SCLEROSIS
  3. LISINOPRIL. [Concomitant]
     Active Substance: LISINOPRIL
     Indication: HYPERTENSION
  4. BACLOFEN. [Concomitant]
     Active Substance: BACLOFEN
     Indication: PRODUCT USED FOR UNKNOWN INDICATION
  5. OXYBUTIN [Concomitant]
     Active Substance: OXYBUTYNIN
     Indication: PRODUCT USED FOR UNKNOWN INDICATION
  6. HYDRALAZINE [Concomitant]
     Active Substance: HYDRALAZINE HYDROCHLORIDE
     Indication: HYPERTENSION
  7. AMPYRA [Suspect]
     Active Substance: DALFAMPRIDINE
     Indication: MULTIPLE SCLEROSIS
     Route: 048
     Dates: start: 20100520

REACTIONS (16)
  - Hypothermia [Recovering/Resolving]
  - Urinary tract infection bacterial [Unknown]
  - Escherichia urinary tract infection [Unknown]
  - Liver function test abnormal [Unknown]
  - Dysarthria [Unknown]
  - Rash maculo-papular [Unknown]
  - Psychotic behaviour [Recovering/Resolving]
  - Autonomic nervous system imbalance [Recovering/Resolving]
  - Hypothyroidism [Unknown]
  - Feeling abnormal [Unknown]
  - Hallucination [Unknown]
  - Confusional state [Unknown]
  - Urinary tract infection enterococcal [Unknown]
  - Multiple sclerosis relapse [Recovering/Resolving]
  - Pain [Unknown]
  - Hypertensive crisis [Unknown]

NARRATIVE: CASE EVENT DATE: 20140211
